FAERS Safety Report 8865164 (Version 1)
Quarter: 2012Q4

REPORT INFORMATION
  Report Type: 
  Country: US (occurrence: US)
  Receive Date: 20121024
  Receipt Date: 20121024
  Transmission Date: 20130627
  Serious: No
  Sender: FDA-Public Use
  Company Number: US-AMGEN-USASP2012001254

PATIENT
  Sex: Female

DRUGS (3)
  1. ENBREL [Suspect]
     Indication: RHEUMATOID ARTHRITIS
     Dosage: 50 mg, qwk
     Dates: start: 20090901
  2. ENBREL [Suspect]
     Indication: PSORIASIS
  3. CRESTOR [Concomitant]

REACTIONS (1)
  - Pain in extremity [Not Recovered/Not Resolved]
